FAERS Safety Report 7419702-8 (Version None)
Quarter: 2011Q2

REPORT INFORMATION
  Report Type: 
  Country: None (occurrence: None)
  Receive Date: 20110418
  Receipt Date: 20110408
  Transmission Date: 20111010
  Serious: Yes (Other)
  Sender: FDA-Public Use
  Company Number: GB-ELI_LILLY_AND_COMPANY-GB201104002166

PATIENT
  Age: 41 Year
  Sex: Female

DRUGS (2)
  1. BYETTA [Suspect]
  2. INSULIN [Concomitant]

REACTIONS (5)
  - INJURY ASSOCIATED WITH DEVICE [None]
  - WOUND COMPLICATION [None]
  - IMPAIRED HEALING [None]
  - SCAR [None]
  - INJECTION SITE IRRITATION [None]
